FAERS Safety Report 10586892 (Version 1)
Quarter: 2014Q4

REPORT INFORMATION
  Report Type: Spontaneous
  Country: US (occurrence: None)
  Receive Date: 20141114
  Receipt Date: 20141114
  Transmission Date: 20150529
  Serious: Yes (Other)
  Sender: FDA-Public Use
  Company Number: None

PATIENT
  Age: 27 Year
  Sex: Female

DRUGS (1)
  1. HUMIRA [Suspect]
     Active Substance: ADALIMUMAB
     Dosage: ONE PEN.
     Route: 058
     Dates: start: 20120912

REACTIONS (4)
  - Abortion spontaneous [None]
  - Maternal exposure timing unspecified [None]
  - Pregnancy [None]
  - Drug dose omission [None]

NARRATIVE: CASE EVENT DATE: 20141107
